FAERS Safety Report 5424823-5 (Version None)
Quarter: 2007Q3

REPORT INFORMATION
  Report Type: 
  Country: None (occurrence: None)
  Receive Date: 20070824
  Receipt Date: 20070822
  Transmission Date: 20080115
  Serious: Yes (Death)
  Sender: FDA-Public Use
  Company Number: US-BAYER-200712379BWH

PATIENT
  Age: 53 Year
  Sex: Male

DRUGS (2)
  1. NEXAVAR [Suspect]
     Indication: HEPATIC NEOPLASM MALIGNANT
     Dosage: TOTAL DAILY DOSE: 800 MG  UNIT DOSE: 200 MG
     Route: 048
     Dates: start: 20070630, end: 20070709
  2. OXYCONTIN [Concomitant]
     Indication: PAIN
     Dosage: TOTAL DAILY DOSE: 20 MG

REACTIONS (1)
  - DEATH [None]
